FAERS Safety Report 17085368 (Version 1)
Quarter: 2019Q4

REPORT INFORMATION
  Report Type: Spontaneous
  Country: US (occurrence: US)
  Receive Date: 20191127
  Receipt Date: 20191127
  Transmission Date: 20200122
  Serious: Yes (Life-Threatening, Hospitalization)
  Sender: FDA-Public Use
  Company Number: None

PATIENT
  Age: 65 Year
  Sex: Male
  Weight: 84.2 kg

DRUGS (1)
  1. ENOXAPARIN [Suspect]
     Active Substance: ENOXAPARIN
     Indication: ANTICOAGULANT THERAPY
     Route: 058

REACTIONS (6)
  - Rectal haemorrhage [None]
  - Haemorrhage [None]
  - Procedural complication [None]
  - Transfusion [None]
  - Biopsy prostate [None]
  - Hypotension [None]

NARRATIVE: CASE EVENT DATE: 20190810
